FAERS Safety Report 9606282 (Version 1)
Quarter: 2013Q4

REPORT INFORMATION
  Report Type: Spontaneous
  Country: US (occurrence: US)
  Receive Date: 20131008
  Receipt Date: 20131008
  Transmission Date: 20140711
  Serious: No
  Sender: FDA-Public Use
  Company Number: US-AMGEN-USASP2013049440

PATIENT
  Age: 87 Year
  Sex: Female

DRUGS (3)
  1. PROLIA [Suspect]
     Indication: OSTEOPOROSIS POSTMENOPAUSAL
  2. PRILOSEC                           /00661201/ [Concomitant]
  3. TYLENOL                            /00020001/ [Concomitant]

REACTIONS (3)
  - Tooth erosion [Unknown]
  - Bone density decreased [Unknown]
  - Back pain [Unknown]
